FAERS Safety Report 4578428-9 (Version None)
Quarter: 2005Q1

REPORT INFORMATION
  Report Type: 
  Country: None (occurrence: None)
  Receive Date: 20050204
  Receipt Date: 20050204
  Transmission Date: 20050727
  Serious: Yes (Other)
  Sender: FDA-Public Use
  Company Number: None

PATIENT
  Sex: Male
  Weight: 90.7194 kg

DRUGS (9)
  1. KETEK [Suspect]
     Indication: SINUSITIS
     Dosage: 800 MG DAILY
     Dates: start: 20041216
  2. AVAPRO [Concomitant]
  3. LISINOPRIL [Concomitant]
  4. PLAVIX [Concomitant]
  5. AVANDIA [Concomitant]
  6. PROTONIX [Concomitant]
  7. LIPITOR [Concomitant]
  8. TYLENOL (CAPLET) [Concomitant]
  9. ATIVAN [Concomitant]

REACTIONS (4)
  - INAPPROPRIATE ANTIDIURETIC HORMONE SECRETION [None]
  - MUSCLE SPASMS [None]
  - MUSCULAR WEAKNESS [None]
  - MYALGIA [None]
